FAERS Safety Report 8434315-7 (Version None)
Quarter: 2012Q2

REPORT INFORMATION
  Report Type: 
  Country: None (occurrence: None)
  Receive Date: 20120613
  Receipt Date: 20120611
  Transmission Date: 20120825
  Serious: Yes (Other)
  Sender: FDA-Public Use
  Company Number: PHHY2012GB049704

PATIENT
  Age: 28 Year
  Sex: Male
  Weight: 63.5 kg

DRUGS (3)
  1. DOXYCYCLINE [Suspect]
     Indication: ACNE
     Route: 048
     Dates: start: 20120426, end: 20120529
  2. ERYTHROMYCIN [Concomitant]
     Dates: start: 20120426
  3. BECLOMETHASONE DIPROPIONATE [Concomitant]
     Dates: start: 20120118, end: 20120308

REACTIONS (3)
  - ERECTILE DYSFUNCTION [None]
  - SEXUAL DYSFUNCTION [None]
  - LIBIDO DECREASED [None]
